FAERS Safety Report 14419329 (Version 1)
Quarter: 2018Q1

REPORT INFORMATION
  Report Type: Spontaneous
  Country: US (occurrence: US)
  Receive Date: 20180120
  Receipt Date: 20180120
  Transmission Date: 20180509
  Serious: Yes (Disabling)
  Sender: FDA-Public Use
  Company Number: None

PATIENT
  Age: 78 Year
  Sex: Female
  Weight: 55.8 kg

DRUGS (4)
  1. CONCENTRATOR FOR OXYGEN [Concomitant]
  2. TIZANIDINE HCL 2 MG TABLET [Suspect]
     Active Substance: TIZANIDINE HYDROCHLORIDE
     Indication: DEPRESSION
     Dosage: ?          QUANTITY:1 TABLET(S);?
     Route: 048
     Dates: start: 20170302
  3. ASPIRIN. [Concomitant]
     Active Substance: ASPIRIN
  4. RANITIDINE. [Concomitant]
     Active Substance: RANITIDINE

REACTIONS (4)
  - Thought blocking [None]
  - Pain [None]
  - Speech disorder [None]
  - Dysphagia [None]

NARRATIVE: CASE EVENT DATE: 20170302
